FAERS Safety Report 7179554-0 (Version None)
Quarter: 2010Q4

REPORT INFORMATION
  Report Type: 
  Country: None (occurrence: None)
  Receive Date: 20101209
  Receipt Date: 20101123
  Transmission Date: 20110411
  Serious: Yes (Other)
  Sender: FDA-Public Use
  Company Number: 011988

PATIENT
  Sex: Female

DRUGS (1)
  1. CILOSTAZOL [Suspect]
     Indication: VASCULAR INSUFFICIENCY
     Dosage: 100 MG, BID, ORAL
     Route: 048
     Dates: start: 20091201, end: 20091201

REACTIONS (5)
  - ERYTHEMA [None]
  - IRRITABILITY [None]
  - MOOD ALTERED [None]
  - MUSCULAR WEAKNESS [None]
  - PRURITUS [None]
